FAERS Safety Report 11655889 (Version 1)
Quarter: 2015Q4

REPORT INFORMATION
  Report Type: Spontaneous
  Country: CN (occurrence: CN)
  Receive Date: 20151023
  Receipt Date: 20151023
  Transmission Date: 20160304
  Serious: Yes (Other)
  Sender: FDA-Public Use
  Company Number: CN-PFIZER INC-2015359835

PATIENT
  Age: 60 Year
  Sex: Male
  Weight: 63 kg

DRUGS (3)
  1. FLUCONAZOLE. [Suspect]
     Active Substance: FLUCONAZOLE
     Indication: CANDIDA INFECTION
     Dosage: 0.4 G, 1X/DAY
     Route: 041
     Dates: start: 20150424, end: 20150425
  2. HUMAN SERUM ALBUMIN [Concomitant]
     Active Substance: ALBUMIN (HUMAN)
     Indication: HYPOPROTEINAEMIA
     Dosage: 10 G, 1X/DAY
     Route: 041
     Dates: start: 20150425, end: 20150425
  3. TORASEMIDE [Concomitant]
     Active Substance: TORSEMIDE
     Indication: OLIGURIA
     Dosage: 20 MG, 1X/DAY
     Route: 041
     Dates: start: 20150425, end: 20150425

REACTIONS (4)
  - Tremor [Recovering/Resolving]
  - Urinary incontinence [Recovering/Resolving]
  - Arrhythmia [Recovering/Resolving]
  - Chills [Recovering/Resolving]

NARRATIVE: CASE EVENT DATE: 20150425
